FAERS Safety Report 9790036 (Version 1)
Quarter: 2013Q4

REPORT INFORMATION
  Report Type: Spontaneous
  Country: US (occurrence: None)
  Receive Date: 20131230
  Receipt Date: 20131230
  Transmission Date: 20140711
  Serious: Yes (Other)
  Sender: FDA-Public Use
  Company Number: None

PATIENT
  Age: 31 Year
  Sex: Female
  Weight: 90.72 kg

DRUGS (1)
  1. ADVIL [Suspect]
     Indication: HEADACHE
     Dosage: 2 PILLS AS NEEDED TAKEN BY MOUTH
     Route: 048
     Dates: start: 20131101, end: 20131229

REACTIONS (4)
  - Dyspepsia [None]
  - Abdominal discomfort [None]
  - Oesophageal pain [None]
  - Drug effect decreased [None]
